FAERS Safety Report 19554062 (Version 1)
Quarter: 2021Q3

REPORT INFORMATION
  Report Type: Spontaneous
  Country: FR (occurrence: FR)
  Receive Date: 20210715
  Receipt Date: 20210715
  Transmission Date: 20211014
  Serious: Yes (Hospitalization)
  Sender: FDA-Public Use
  Company Number: FR-MYLANLABS-2021M1041757

PATIENT
  Age: 72 Year
  Sex: Female
  Weight: 68 kg

DRUGS (3)
  1. AZACTAM [Suspect]
     Active Substance: AZTREONAM
     Indication: OSTEOARTHROPATHY
     Dosage: 8 GRAM, QD
     Route: 042
     Dates: start: 20200828, end: 20200901
  2. CIPROFLOXACIN. [Suspect]
     Active Substance: CIPROFLOXACIN
     Indication: OSTEOARTHROPATHY
     Dosage: 1000 MILLIGRAM, QD
     Route: 048
     Dates: start: 20200821, end: 20200823
  3. MEROPENEM TRIHYDRATE [Suspect]
     Active Substance: MEROPENEM
     Indication: OSTEOARTHROPATHY
     Dosage: 2 GRAM, QD
     Route: 042
     Dates: start: 20200813, end: 20200827

REACTIONS (2)
  - Neutropenia [Not Recovered/Not Resolved]
  - Off label use [Unknown]

NARRATIVE: CASE EVENT DATE: 20200827
